FAERS Safety Report 8516009 (Version 4)
Quarter: 2012Q4

REPORT INFORMATION
  Report Type: Report from Study
  Country: US (occurrence: US)
  Receive Date: 20120417
  Receipt Date: 20120921
  Transmission Date: 20130627
  Serious: Yes (Other)
  Sender: FDA-Public Use
  Company Number: US-ROCHE-1008269

PATIENT
  Sex: Male
  Weight: 83.99 kg

DRUGS (5)
  1. VEMURAFENIB [Suspect]
     Indication: METASTATIC MALIGNANT MELANOMA
     Route: 048
     Dates: start: 20110922
  2. VEMURAFENIB [Suspect]
     Dosage: self adjust dose at his own discretion
     Route: 048
     Dates: start: 201209
  3. SELENIUM [Concomitant]
  4. COQ-10 [Concomitant]
  5. KRILL OIL [Concomitant]

REACTIONS (21)
  - Neoplasm skin [Not Recovered/Not Resolved]
  - Decreased appetite [Not Recovered/Not Resolved]
  - Weight decreased [Not Recovered/Not Resolved]
  - Ageusia [Not Recovered/Not Resolved]
  - Fatigue [Not Recovered/Not Resolved]
  - Insomnia [Not Recovered/Not Resolved]
  - Abdominal discomfort [Unknown]
  - Sunburn [Not Recovered/Not Resolved]
  - Arthralgia [Unknown]
  - Alopecia [Unknown]
  - Arthralgia [Unknown]
  - Skin papilloma [Unknown]
  - Rash [Unknown]
  - Skin exfoliation [Unknown]
  - Pain of skin [Unknown]
  - Fatigue [Unknown]
  - Hair growth abnormal [Unknown]
  - Dry skin [Unknown]
  - Erythema [Not Recovered/Not Resolved]
  - Chapped lips [Not Recovered/Not Resolved]
  - Skin papilloma [Not Recovered/Not Resolved]
